FAERS Safety Report 6655892-2 (Version None)
Quarter: 2010Q1

REPORT INFORMATION
  Report Type: 
  Country: None (occurrence: None)
  Receive Date: 20100329
  Receipt Date: 20100317
  Transmission Date: 20100710
  Serious: Yes (Other)
  Sender: FDA-Public Use
  Company Number: PHHY2010IT16061

PATIENT
  Sex: Male

DRUGS (4)
  1. GLEEVEC [Suspect]
     Indication: CHRONIC MYELOID LEUKAEMIA
     Dosage: 100 MG, UNK
     Route: 048
  2. AULIN [Concomitant]
     Dosage: 100 MG, UNK
     Route: 048
  3. ALLOPURINOL [Concomitant]
     Dosage: 300 MG
     Route: 048
  4. DEURSIL [Concomitant]
     Dosage: 450 MG
     Route: 048

REACTIONS (1)
  - MYELOFIBROSIS [None]
